FAERS Safety Report 6933762-X (Version None)
Quarter: 2010Q3

REPORT INFORMATION
  Report Type: 
  Country: None (occurrence: None)
  Receive Date: 20100820
  Receipt Date: 20100806
  Transmission Date: 20110219
  Serious: Yes (Other)
  Sender: FDA-Public Use
  Company Number: US-JNJCH-2010018896

PATIENT
  Sex: Female
  Weight: 124.26 kg

DRUGS (21)
  1. CETIRIZINE HYDROCHLORIDE [Suspect]
     Indication: PRODUCT USED FOR UNKNOWN INDICATION
     Dosage: TEXT:10MG DAILY
     Route: 048
  2. ACETYLSALICYLIC ACID [Suspect]
     Indication: CARDIAC DISORDER
     Dosage: TEXT:81MG DAILY
     Route: 048
  3. LYRICA [Suspect]
     Indication: FIBROMYALGIA
     Dosage: TEXT:150MG 3X/DAY THEN 4X/DAY
     Route: 048
  4. LISINOPRIL [Suspect]
     Indication: BLOOD PRESSURE INCREASED
     Dosage: TEXT:10 MG DAILY
     Route: 048
  5. FLUTICASONE PROPIONATE [Suspect]
     Indication: NASAL SEPTUM DEVIATION
     Dosage: TEXT:UNKNOWN
     Route: 045
  6. SIMVASTATIN [Suspect]
     Indication: BLOOD CHOLESTEROL INCREASED
     Dosage: TEXT:40MG DAILY
     Route: 048
  7. MELOXICAM [Suspect]
     Indication: PAIN
     Dosage: TEXT:15MG 2X/DAY
     Route: 048
  8. LEVOTHYROXINE SODIUM [Suspect]
     Indication: THYROID DISORDER
     Dosage: TEXT:50MCG DAILY
     Route: 048
  9. TEGRETOL [Suspect]
     Indication: MOOD SWINGS
     Dosage: TEXT:400MG IN MORNING, 800MG IN EVENING
     Route: 048
  10. PROVIGIL [Suspect]
     Indication: SLEEP APNOEA SYNDROME
     Dosage: TEXT:200 MG DAILY
     Route: 048
  11. PROPRANOLOL [Suspect]
     Indication: BLOOD PRESSURE INCREASED
     Dosage: TEXT:20 MG 2X/DAY
     Route: 048
  12. METHOCARBAMOL [Suspect]
     Indication: PAIN
     Dosage: TEXT:500 MG 2X/DAY
     Route: 048
  13. BACLOFEN [Suspect]
     Indication: RESTLESS LEGS SYNDROME
     Dosage: TEXT:20 MG 3X/DAY
     Route: 048
  14. METHADOSE [Suspect]
     Indication: PAIN
     Dosage: TEXT:10 MG 5X/DAY
     Route: 048
  15. CYMBALTA [Suspect]
     Indication: DEPRESSION
     Dosage: TEXT:60 MG 2X/DAY
     Route: 048
  16. OMEPRAZOLE [Suspect]
     Indication: GASTROOESOPHAGEAL REFLUX DISEASE
     Dosage: TEXT:40 MG DAILY
     Route: 048
  17. LIDODERM [Suspect]
     Indication: MYALGIA
     Dosage: TEXT:UNK
     Route: 065
  18. INSULIN DETEMIR [Suspect]
     Indication: DIABETES MELLITUS
     Dosage: TEXT:47 UNITS AM AND PM
     Route: 058
  19. MIRALAX [Suspect]
     Indication: CONSTIPATION
     Dosage: TEXT:17 G DAILY
     Route: 048
  20. FISH OIL [Suspect]
     Indication: PRODUCT USED FOR UNKNOWN INDICATION
     Dosage: TEXT:UNK
     Route: 065
  21. VITAMIN E [Suspect]
     Indication: PRODUCT USED FOR UNKNOWN INDICATION
     Dosage: TEXT:UNK
     Route: 065

REACTIONS (2)
  - CONVULSION [None]
  - FIBROMYALGIA [None]
